FAERS Safety Report 6750417-5 (Version None)
Quarter: 2010Q2

REPORT INFORMATION
  Report Type: 
  Country: None (occurrence: None)
  Receive Date: 20100601
  Receipt Date: 20100519
  Transmission Date: 20101027
  Serious: Yes (Hospitalization, Other)
  Sender: FDA-Public Use
  Company Number: CA-ELI_LILLY_AND_COMPANY-CA201005007017

PATIENT
  Age: 65 Year
  Sex: Female

DRUGS (16)
  1. ZYPREXA [Suspect]
     Indication: ANXIETY
     Dosage: 2.5 MG, EACH EVENING
     Route: 048
     Dates: start: 20080902, end: 20080908
  2. ZYPREXA [Suspect]
     Dates: start: 20080908, end: 20080925
  3. ZYPREXA [Suspect]
     Dates: start: 20080925
  4. DILANTIN [Concomitant]
     Indication: EPILEPSY
     Dosage: 300 MG, EACH EVENING
     Route: 048
     Dates: start: 20080912, end: 20080925
  5. DILANTIN [Concomitant]
     Dates: start: 20080925
  6. PREMARIN [Concomitant]
     Dosage: 93 MG, DAILY (1/D)
  7. KETOCONAZOLE [Concomitant]
     Dosage: UNK, DAILY (1/D)
  8. APO-MEDROXY [Concomitant]
     Dosage: 2.5 MG, DAILY (1/D)
  9. ARTHROTEC [Concomitant]
     Dosage: UNK, UNK
     Dates: start: 20080915, end: 20080929
  10. ARTHROTEC [Concomitant]
     Dates: start: 20080929
  11. ARICEPT [Concomitant]
     Indication: DEMENTIA ALZHEIMER'S TYPE
     Dosage: 10 MG, EACH MORNING
     Dates: start: 20030101
  12. SYNTHROID [Concomitant]
     Dosage: 0.025 MG, DAILY (1/D)
  13. RIVASA [Concomitant]
     Dosage: 80 MG, DAILY (1/D)
  14. VITAMIN E [Concomitant]
     Dosage: 400 IU, DAILY (1/D)
  15. CARBOCAL D [Concomitant]
     Dosage: 400 D/F, 2/D
  16. ACTONEL [Concomitant]
     Dosage: 35 MG, WEEKLY (1/W)

REACTIONS (6)
  - CONFUSIONAL STATE [None]
  - EPILEPSY [None]
  - FEELING HOT [None]
  - OFF LABEL USE [None]
  - PANIC ATTACK [None]
  - SEDATION [None]
